FAERS Safety Report 18624634 (Version 2)
Quarter: 2020Q4

REPORT INFORMATION
  Report Type: Report from Study
  Country: DE (occurrence: DE)
  Receive Date: 20201216
  Receipt Date: 20201221
  Transmission Date: 20210114
  Serious: No
  Sender: FDA-Public Use
  Company Number: DE-CELGENEUS-DEU-20201203858

PATIENT
  Age: 57 Year
  Sex: Female

DRUGS (2)
  1. AG-221 [Suspect]
     Active Substance: ENASIDENIB
     Indication: ACUTE MYELOID LEUKAEMIA
     Route: 048
  2. AG-221 [Suspect]
     Active Substance: ENASIDENIB
     Indication: MYELODYSPLASTIC SYNDROME

REACTIONS (1)
  - Epistaxis [Unknown]

NARRATIVE: CASE EVENT DATE: 20201211
